FAERS Safety Report 9762335 (Version 1)
Quarter: 2013Q4

REPORT INFORMATION
  Report Type: Spontaneous
  Country: US (occurrence: US)
  Receive Date: 20131216
  Receipt Date: 20131216
  Transmission Date: 20140711
  Serious: No
  Sender: FDA-Public Use
  Company Number: US-BIOGENIDEC-2013BI103493

PATIENT
  Age: 51 Year
  Sex: Female

DRUGS (11)
  1. TECFIDERA [Suspect]
     Indication: MULTIPLE SCLEROSIS
     Route: 048
     Dates: start: 201309
  2. LYRICA [Concomitant]
  3. SYNTHROID [Concomitant]
  4. SIMVASTATIN [Concomitant]
  5. SINGULAIR [Concomitant]
  6. ISOSORBIDE DINITRATE [Concomitant]
  7. BACLOFEN [Concomitant]
  8. BUTALBITAL-ASA-CAFFEINE [Concomitant]
  9. ATELVIA [Concomitant]
  10. VITAMIN B12 [Concomitant]
  11. ASPIRIN [Concomitant]

REACTIONS (4)
  - Oesophageal spasm [Unknown]
  - Chest pain [Unknown]
  - Dysphagia [Unknown]
  - Nausea [Unknown]
